FAERS Safety Report 9157662 (Version 1)
Quarter: 2013Q1

REPORT INFORMATION
  Report Type: Spontaneous
  Country: JP (occurrence: JP)
  Receive Date: 20130312
  Receipt Date: 20130312
  Transmission Date: 20140127
  Serious: Yes (Other)
  Sender: FDA-Public Use
  Company Number: PHHY2013JP022918

PATIENT
  Age: 86 Year
  Sex: Female
  Weight: 41 kg

DRUGS (20)
  1. EXELON PATCH [Suspect]
     Indication: DEMENTIA ALZHEIMER^S TYPE
     Dosage: 4.5 MG, DAILY
     Route: 062
     Dates: start: 20120908, end: 20121001
  2. EXELON PATCH [Suspect]
     Indication: MEMORY IMPAIRMENT
     Dosage: 9 MG, DAILY
     Route: 062
  3. EXELON PATCH [Suspect]
     Dosage: 13.5 MG, DAILY
     Route: 062
     Dates: start: 20121031, end: 20121127
  4. EXELON PATCH [Suspect]
     Dosage: 18 MG, DAILY
     Route: 062
     Dates: start: 20121128, end: 20121219
  5. LIVALO [Concomitant]
     Dosage: 1 DF
     Route: 048
  6. WARFARIN [Concomitant]
     Dosage: 3 DF,
     Route: 048
  7. WARFARIN [Concomitant]
     Dosage: 1 DF
     Route: 048
  8. GASPORT [Concomitant]
     Dosage: 1 DF
     Route: 048
  9. GASPORT [Concomitant]
     Dosage: UNK DF
  10. BAYASPIRIN [Concomitant]
     Dosage: 1 DF
     Route: 048
  11. ARTIST [Concomitant]
     Dosage: 1 DF
     Route: 048
  12. LASIX [Concomitant]
     Dosage: 1 DF
     Route: 048
  13. AMLODIPINE BESILATE [Concomitant]
     Dosage: 1 DF
     Route: 048
  14. NICORANDIL [Concomitant]
     Dosage: 2 DF
     Route: 048
  15. FERROMIA [Concomitant]
     Dosage: 2 DF
     Route: 048
  16. TETRAMIDE [Concomitant]
     Dosage: 2 DF
     Route: 048
  17. MYSLEE [Concomitant]
     Dosage: 2 DF
     Route: 048
  18. SENNOSIDE [Concomitant]
     Dosage: 2 DF
     Route: 048
  19. MELEX [Concomitant]
     Dosage: 1 DF
     Route: 048
  20. ZYLORIC [Concomitant]
     Dosage: 1 DF
     Route: 048

REACTIONS (4)
  - Restlessness [Recovered/Resolved]
  - Confabulation [Unknown]
  - Hallucination [Unknown]
  - Hallucination, auditory [Unknown]
